FAERS Safety Report 11439220 (Version 1)
Quarter: 2015Q3

REPORT INFORMATION
  Report Type: Spontaneous
  Country: US (occurrence: US)
  Receive Date: 20150901
  Receipt Date: 20150901
  Transmission Date: 20151125
  Serious: No
  Sender: FDA-Public Use
  Company Number: US-ROCHE-1174789

PATIENT
  Sex: Male

DRUGS (3)
  1. RIBAVIRIN. [Suspect]
     Active Substance: RIBAVIRIN
     Indication: CHRONIC HEPATITIS C
     Dosage: (UNCERTAIN DOSES) FOR INITIAL 12 WEEK LENGTH OF THERAPY.
     Route: 065
     Dates: start: 20121109
  2. TELAPREVIR [Suspect]
     Active Substance: TELAPREVIR
     Indication: CHRONIC HEPATITIS C
     Route: 065
     Dates: start: 20121109
  3. PEGASYS [Suspect]
     Active Substance: PEGINTERFERON ALFA-2A
     Indication: CHRONIC HEPATITIS C
     Route: 065
     Dates: start: 20121109

REACTIONS (5)
  - Pruritus [Unknown]
  - Anaemia [Unknown]
  - Rectal haemorrhage [Unknown]
  - Disorientation [Unknown]
  - Dysarthria [Unknown]
